FAERS Safety Report 5263359-1 (Version None)
Quarter: 2007Q1

REPORT INFORMATION
  Report Type: 
  Country: None (occurrence: None)
  Receive Date: 20070313
  Receipt Date: 20070301
  Transmission Date: 20070707
  Serious: Yes (Other)
  Sender: FDA-Public Use
  Company Number: PHBS2007NL03717

PATIENT
  Age: 83 Year
  Sex: Female

DRUGS (5)
  1. AREDIA [Suspect]
     Indication: HYPERCALCAEMIA
     Dosage: 15 MG/ML, QMO
     Route: 042
     Dates: start: 20020928, end: 20061201
  2. TEMAZEPAM [Concomitant]
     Dosage: 10 MG
  3. METOPROLOL SUCCINATE [Concomitant]
     Dosage: 100 MG
     Dates: start: 20040728
  4. PERINDOPRIL ERBUMINE [Concomitant]
     Dosage: 25 MG, TIMES PER 2 MG
     Dates: start: 20070123
  5. FUROSEMIDE [Concomitant]
     Dosage: 40 MG
     Dates: start: 20000623

REACTIONS (4)
  - EXCESSIVE GRANULATION TISSUE [None]
  - OSTEITIS [None]
  - OSTEONECROSIS [None]
  - SEQUESTRECTOMY [None]
